FAERS Safety Report 18403881 (Version 1)
Quarter: 2020Q4

REPORT INFORMATION
  Report Type: Spontaneous
  Country: US (occurrence: US)
  Receive Date: 20201020
  Receipt Date: 20201020
  Transmission Date: 20210114
  Serious: Yes (Other)
  Sender: FDA-Public Use
  Company Number: US-ENDO PHARMACEUTICALS INC-2020-006783

PATIENT
  Age: 66 Year
  Sex: Male
  Weight: 72.56 kg

DRUGS (6)
  1. XIAFLEX [Suspect]
     Active Substance: COLLAGENASE CLOSTRIDIUM HISTOLYTICUM
     Dosage: UNK UNKNOWN, UNK; CYCLE TWO, INJECTION ONE
     Route: 026
     Dates: start: 202008
  2. XIAFLEX [Suspect]
     Active Substance: COLLAGENASE CLOSTRIDIUM HISTOLYTICUM
     Indication: PEYRONIE^S DISEASE
     Dosage: UNK UNKNOWN, UNK; CYCLE TWO, INJECTION TWO
     Route: 026
     Dates: start: 20200818
  3. XIAFLEX [Suspect]
     Active Substance: COLLAGENASE CLOSTRIDIUM HISTOLYTICUM
     Dosage: UNK UNKNOWN, UNK; CYCLE ONE, INJECTION TWO
     Route: 026
     Dates: start: 20200616
  4. DIOVAN [Concomitant]
     Active Substance: VALSARTAN
     Indication: HYPERTENSION
     Dosage: 320 MG, UNKNOWN
     Route: 065
  5. FLOMAX [Concomitant]
     Active Substance: TAMSULOSIN HYDROCHLORIDE
     Indication: PRODUCT USED FOR UNKNOWN INDICATION
     Dosage: UNK UNKNOWN, DAILY
     Route: 048
  6. XIAFLEX [Suspect]
     Active Substance: COLLAGENASE CLOSTRIDIUM HISTOLYTICUM
     Dosage: UNK UNKNOWN, UNK; CYCLE ONE, INJECTION ONE
     Route: 026
     Dates: start: 20200612

REACTIONS (6)
  - Penile size reduced [Unknown]
  - Drug ineffective [Unknown]
  - Penile contusion [Recovered/Resolved]
  - Penile pain [Unknown]
  - Inappropriate schedule of product administration [Unknown]
  - Fracture of penis [Unknown]

NARRATIVE: CASE EVENT DATE: 202006
